FAERS Safety Report 7849568-3 (Version None)
Quarter: 2011Q4

REPORT INFORMATION
  Report Type: 
  Country: None (occurrence: None)
  Receive Date: 20111026
  Receipt Date: 20111014
  Transmission Date: 20120403
  Serious: Yes (Hospitalization)
  Sender: FDA-Public Use
  Company Number: CA-JNJFOC-20111007856

PATIENT
  Sex: Female
  Weight: 98 kg

DRUGS (3)
  1. METHOTREXATE [Concomitant]
     Route: 058
  2. REMICADE [Suspect]
     Indication: CROHN'S DISEASE
     Route: 042
  3. ENTOCORD [Concomitant]
     Route: 048

REACTIONS (2)
  - UPPER LIMB FRACTURE [None]
  - FALL [None]
